FAERS Safety Report 9821159 (Version 1)
Quarter: 2013Q4

REPORT INFORMATION
  Report Type: Spontaneous
  Country: US (occurrence: None)
  Receive Date: 20131028
  Receipt Date: 20131028
  Transmission Date: 20140711
  Serious: Yes (Other)
  Sender: FDA-Public Use
  Company Number: 2013US001363

PATIENT
  Age: 52 Year
  Sex: Female
  Weight: 62 kg

DRUGS (2)
  1. ICLUSIG [Suspect]
     Indication: CHRONIC MYELOID LEUKAEMIA
     Route: 048
     Dates: start: 20130125
  2. IMITREX (SUMATRIPTAN) [Concomitant]

REACTIONS (6)
  - Nausea [None]
  - Vomiting [None]
  - Abdominal pain [None]
  - Rash [None]
  - Fatigue [None]
  - Myalgia [None]
